FAERS Safety Report 9607577 (Version 1)
Quarter: 2013Q4

REPORT INFORMATION
  Report Type: Spontaneous
  Country: US (occurrence: US)
  Receive Date: 20131009
  Receipt Date: 20131009
  Transmission Date: 20140711
  Serious: Yes (Other)
  Sender: FDA-Public Use
  Company Number: PHEH2013US020934

PATIENT
  Sex: Male

DRUGS (7)
  1. DIOVAN HCT [Suspect]
     Indication: HYPERTENSION
     Dosage: 1 DF, (80/12.5)
  2. SYNTHROID [Concomitant]
     Dosage: UNK UKN, UNK
  3. TETRACYCLINE HCL [Concomitant]
     Dosage: UNK UKN, UNK
  4. LEVETIRACETAM [Concomitant]
     Dosage: UNK UKN, UNK
  5. PERCOCET [Concomitant]
     Dosage: UNK UKN, UNK
  6. TRAZODONA [Concomitant]
     Dosage: UNK UKN, UNK
  7. BABY ASPIRIN [Concomitant]
     Dosage: UNK UKN, UNK

REACTIONS (2)
  - Cerebrovascular accident [Unknown]
  - Convulsion [Unknown]
